FAERS Safety Report 14279346 (Version 4)
Quarter: 2018Q1

REPORT INFORMATION
  Report Type: Report from Study
  Country: DE (occurrence: DE)
  Receive Date: 20171213
  Receipt Date: 20180117
  Transmission Date: 20180508
  Serious: Yes (Other)
  Sender: FDA-Public Use
  Company Number: DE-TEVA-2017-DE-829581

PATIENT
  Age: 30 Year
  Sex: Male

DRUGS (7)
  1. LORAZEPAM. [Suspect]
     Active Substance: LORAZEPAM
     Dosage: DAILY DOSE 3 MG
     Route: 048
     Dates: start: 20170207, end: 20170207
  2. LORAZEPAM. [Suspect]
     Active Substance: LORAZEPAM
     Dosage: DAILY DOSE 6 MG
     Route: 048
     Dates: start: 20170208, end: 20170208
  3. RISPERDAL [Suspect]
     Active Substance: RISPERIDONE
     Dosage: DAILY DOSE 3 MG
     Route: 048
     Dates: start: 20170217
  4. HALDOL [Concomitant]
     Active Substance: HALOPERIDOL
     Indication: PSYCHOTIC DISORDER
     Dosage: DAILY DOSE 5 MG
     Route: 030
     Dates: start: 20170217
  5. LORAZEPAM. [Suspect]
     Active Substance: LORAZEPAM
     Dosage: DAILY DOSE 4 MG
     Route: 048
     Dates: start: 20170209, end: 20170210
  6. LORAZEPAM. [Suspect]
     Active Substance: LORAZEPAM
     Dosage: DAILY DOSE 2.5 MG
     Route: 048
     Dates: start: 20170211, end: 20170211
  7. CIATYL-Z ACUPHASE [Suspect]
     Active Substance: ZUCLOPENTHIXOL ACETATE
     Dosage: DAILY DOSE 100 MG
     Route: 030
     Dates: start: 20170208

REACTIONS (1)
  - Urinary retention [Recovered/Resolved]

NARRATIVE: CASE EVENT DATE: 20170208
